FAERS Safety Report 10239390 (Version 1)
Quarter: 2014Q2

REPORT INFORMATION
  Report Type: Report from Study
  Country: US (occurrence: US)
  Receive Date: 20140616
  Receipt Date: 20140616
  Transmission Date: 20141212
  Serious: No
  Sender: FDA-Public Use
  Company Number: US-ABBVIE-14P-163-1247556-00

PATIENT
  Age: 29 Year
  Sex: Female

DRUGS (5)
  1. LUPANETA PACK [Suspect]
     Indication: ENDOMETRIOSIS
     Dates: start: 20140406
  2. LUPANETA PACK [Suspect]
     Indication: ENDOMETRIOSIS
     Route: 048
     Dates: start: 20140604
  3. LIDOCAINE [Concomitant]
     Indication: ABDOMINAL PAIN
  4. DILAUDID [Concomitant]
     Indication: PAIN
     Route: 048
  5. CAMBIA [Concomitant]
     Indication: MIGRAINE
     Route: 048

REACTIONS (2)
  - Peripheral swelling [Not Recovered/Not Resolved]
  - Pain in extremity [Not Recovered/Not Resolved]
